FAERS Safety Report 4600776-4 (Version None)
Quarter: 2005Q1

REPORT INFORMATION
  Report Type: 
  Country: None (occurrence: None)
  Receive Date: 20050223
  Receipt Date: 20050209
  Transmission Date: 20050727
  Serious: Yes (Life-Threatening, Hospitalization, Other)
  Sender: FDA-Public Use
  Company Number: HQWYE207009FEB05

PATIENT
  Age: 52 Year
  Sex: Male

DRUGS (6)
  1. NEUMEGA [Suspect]
  2. PEG-INTRON [Suspect]
     Indication: HEPATITIS C
     Dosage: SUBCUTANEOUS
     Route: 058
     Dates: start: 20041206
  3. REBETOL [Suspect]
     Indication: HEPATITIS C
     Dates: start: 20041206
  4. ZOLOFT [Concomitant]
  5. TYLENOL [Concomitant]
  6. AMINO ACIDS (AMINO ACIDS) [Concomitant]

REACTIONS (3)
  - ATRIAL FIBRILLATION [None]
  - HYPOKALAEMIA [None]
  - HYPOMAGNESAEMIA [None]
